FAERS Safety Report 15739389 (Version 1)
Quarter: 2018Q4

REPORT INFORMATION
  Report Type: Report from Study
  Country: US (occurrence: US)
  Receive Date: 20181219
  Receipt Date: 20181219
  Transmission Date: 20190205
  Serious: Yes (Hospitalization)
  Sender: FDA-Public Use
  Company Number: US-MALLINCKRODT-T201803367

PATIENT
  Age: 68 Year
  Sex: Female

DRUGS (2)
  1. REPOSITORY CORTICOTROPIN INJECTION [Suspect]
     Active Substance: CORTICOTROPIN
     Indication: SARCOIDOSIS
     Dosage: 40UNITS/0.5 ML, 2 TIMES PER WEEK (TUESDAY/ THURSDAY)
     Route: 058
     Dates: start: 20180713
  2. OXYGEN. [Concomitant]
     Active Substance: OXYGEN
     Indication: DYSPNOEA
     Dosage: UNK

REACTIONS (15)
  - Feeling hot [Not Recovered/Not Resolved]
  - Pain in extremity [Not Recovered/Not Resolved]
  - Condition aggravated [Unknown]
  - Decreased appetite [Not Recovered/Not Resolved]
  - Throat irritation [Not Recovered/Not Resolved]
  - Visual acuity reduced [Not Recovered/Not Resolved]
  - Fatigue [Unknown]
  - Fluid retention [Not Recovered/Not Resolved]
  - Diarrhoea [Recovering/Resolving]
  - Immune system disorder [Unknown]
  - Bone pain [Not Recovered/Not Resolved]
  - Pneumonia [Recovering/Resolving]
  - Heart rate increased [Not Recovered/Not Resolved]
  - Sluggishness [Not Recovered/Not Resolved]
  - Insomnia [Unknown]

NARRATIVE: CASE EVENT DATE: 2018
